FAERS Safety Report 4440091-5 (Version None)
Quarter: 2004Q3

REPORT INFORMATION
  Report Type: 
  Country: None (occurrence: None)
  Receive Date: 20040902
  Receipt Date: 20030929
  Transmission Date: 20050211
  Serious: Yes (Hospitalization)
  Sender: FDA-Public Use
  Company Number: US-MERCK-0310USA00140

PATIENT
  Age: 43 Year
  Sex: Female
  Weight: 58 kg

DRUGS (4)
  1. [THERAPY UNSPECIFIED] [Concomitant]
     Route: 065
  2. PERCOCET [Concomitant]
     Indication: PAIN
     Route: 065
  3. VIOXX [Suspect]
     Indication: PAIN
     Route: 048
     Dates: start: 20020101
  4. VIOXX [Suspect]
     Indication: ARTHRITIS
     Route: 048
     Dates: start: 20020101

REACTIONS (22)
  - ABDOMINAL PAIN UPPER [None]
  - ARTHRALGIA [None]
  - BLOOD PRESSURE INCREASED [None]
  - CELLULITIS [None]
  - CHEST PAIN [None]
  - DEPRESSION [None]
  - EMOTIONAL DISTRESS [None]
  - FATIGUE [None]
  - FIBROMYALGIA [None]
  - HEADACHE [None]
  - HYPERSENSITIVITY [None]
  - HYPOAESTHESIA [None]
  - INSOMNIA [None]
  - LOCALISED OSTEOARTHRITIS [None]
  - MUSCULAR WEAKNESS [None]
  - MUSCULOSKELETAL STIFFNESS [None]
  - PAIN [None]
  - PARAESTHESIA [None]
  - PRODUCTIVE COUGH [None]
  - PULMONARY CONGESTION [None]
  - ROAD TRAFFIC ACCIDENT [None]
  - SUTURE INSERTION [None]
